FAERS Safety Report 9993016 (Version 1)
Quarter: 2014Q1

REPORT INFORMATION
  Report Type: Report from Study
  Country: US (occurrence: US)
  Receive Date: 20140310
  Receipt Date: 20140310
  Transmission Date: 20141002
  Serious: No
  Sender: FDA-Public Use
  Company Number: US-ABBVIE-13P-163-1167450-00

PATIENT
  Sex: Female
  Weight: 102.15 kg

DRUGS (3)
  1. LEUPLIN SR [Suspect]
     Indication: UTERINE LEIOMYOMA
     Dates: start: 20130822
  2. IRON [Concomitant]
     Indication: MINERAL SUPPLEMENTATION
  3. B-12 [Concomitant]
     Indication: VITAMIN SUPPLEMENTATION

REACTIONS (1)
  - Menstrual disorder [Not Recovered/Not Resolved]
